FAERS Safety Report 7905456-5 (Version None)
Quarter: 2011Q4

REPORT INFORMATION
  Report Type: 
  Country: None (occurrence: None)
  Receive Date: 20111110
  Receipt Date: 20111101
  Transmission Date: 20120403
  Serious: Yes (Hospitalization)
  Sender: FDA-Public Use
  Company Number: US-BIOGENIDEC-2011BI041557

PATIENT
  Age: 30 Year
  Sex: Female

DRUGS (2)
  1. TYSABRI [Suspect]
     Indication: MULTIPLE SCLEROSIS
     Route: 042
     Dates: start: 20110823, end: 20110901
  2. TYSABRI [Suspect]
     Route: 042
     Dates: start: 20090909, end: 20110328

REACTIONS (2)
  - OVARIAN MASS [None]
  - POST PROCEDURAL INFECTION [None]
